FAERS Safety Report 5062653-7 (Version None)
Quarter: 2006Q3

REPORT INFORMATION
  Report Type: 
  Country: None (occurrence: None)
  Receive Date: 20060724
  Receipt Date: 20060724
  Transmission Date: 20061208
  Serious: Yes (Life-Threatening, Hospitalization)
  Sender: FDA-Public Use
  Company Number: None

PATIENT
  Sex: Male

DRUGS (2)
  1. CIPROFLOXACIN [Suspect]
     Indication: CATHETER RELATED INFECTION
     Dosage: 250 MG ONCE DAILY PO
     Route: 048
     Dates: start: 20060427, end: 20060430
  2. CIPROFLOXACIN [Suspect]
     Indication: PERITONEAL DIALYSIS
     Dosage: 250 MG ONCE DAILY PO
     Route: 048
     Dates: start: 20060427, end: 20060430

REACTIONS (2)
  - CONVULSION [None]
  - FALL [None]
